FAERS Safety Report 6370127-6 (Version None)
Quarter: 2009Q3

REPORT INFORMATION
  Report Type: 
  Country: None (occurrence: None)
  Receive Date: 20090923
  Receipt Date: 20071206
  Transmission Date: 20100115
  Serious: No
  Sender: FDA-Public Use
  Company Number: US-ASTRAZENECA-2006UW21030

PATIENT
  Age: 14576 Day
  Sex: Male
  Weight: 138.8 kg

DRUGS (11)
  1. SEROQUEL [Suspect]
     Route: 048
     Dates: start: 20050124
  2. TRAZODONE HCL [Concomitant]
  3. WELLBUTRIN [Concomitant]
  4. IMDUR [Concomitant]
  5. LOPRESSOR [Concomitant]
  6. NITROGLYCERIN [Concomitant]
  7. CLARITIN-D [Concomitant]
  8. ASPIRIN [Concomitant]
  9. MOTRIN [Concomitant]
  10. FOLIC ACID [Concomitant]
  11. ZANTAC [Concomitant]

REACTIONS (6)
  - ARTHRALGIA [None]
  - DIABETES MELLITUS [None]
  - FATIGUE [None]
  - HAEMATOCHEZIA [None]
  - HYPOAESTHESIA [None]
  - PAIN IN EXTREMITY [None]
